FAERS Safety Report 9341876 (Version 1)
Quarter: 2013Q2

REPORT INFORMATION
  Report Type: Spontaneous
  Country: ES (occurrence: ES)
  Receive Date: 20130611
  Receipt Date: 20130611
  Transmission Date: 20140414
  Serious: Yes (Hospitalization)
  Sender: FDA-Public Use
  Company Number: ES-PFIZER INC-2013173671

PATIENT
  Age: 82 Year
  Sex: Female

DRUGS (2)
  1. TAZOCEL [Suspect]
     Indication: BACTERIAL SEPSIS
     Dosage: 2 G, 3X/DAY
     Route: 042
     Dates: start: 20120414, end: 20120516
  2. TARGOCID [Suspect]
     Indication: ABDOMINAL SEPSIS
     Dosage: 400 MG, 1X/DAY
     Route: 042
     Dates: start: 20120512, end: 20120515

REACTIONS (1)
  - Drug reaction with eosinophilia and systemic symptoms [Recovered/Resolved]
